FAERS Safety Report 20955071 (Version 1)
Quarter: 2022Q2

REPORT INFORMATION
  Report Type: Other
  Country: US (occurrence: None)
  Receive Date: 20220614
  Receipt Date: 20220614
  Transmission Date: 20220721
  Serious: Yes (Other)
  Sender: FDA-Public Use
  Company Number: US-ROCHE-2856256

PATIENT
  Sex: Female
  Weight: 63.5 kg

DRUGS (17)
  1. OCREVUS [Suspect]
     Active Substance: OCRELIZUMAB
     Indication: Generalised anxiety disorder
     Dosage: INFUSE 300 MG INTRAVENOUSLY ON DAYS 1 AND 15 THEN INFUSE 600 MG INTRAVENOUSLY EVERY MONTHS
     Route: 042
     Dates: start: 20190821
  2. OCREVUS [Suspect]
     Active Substance: OCRELIZUMAB
     Indication: Insomnia
     Dosage: INFUSE EVERY 6 MONTHS?DATE OF TREATMENT: 06/JUL/2020?ANTICIPATED DATE OF TREATMENT: 10/SEP/2019, 24/
     Route: 042
  3. OCREVUS [Suspect]
     Active Substance: OCRELIZUMAB
     Indication: Myalgia
  4. OCREVUS [Suspect]
     Active Substance: OCRELIZUMAB
     Indication: Multiple sclerosis
  5. ARMOUR THYROID [Concomitant]
     Active Substance: THYROID, PORCINE
  6. ATENOLOL [Concomitant]
     Active Substance: ATENOLOL
  7. SIMVASTATIN [Concomitant]
     Active Substance: SIMVASTATIN
  8. ZOLOFT [Concomitant]
     Active Substance: SERTRALINE HYDROCHLORIDE
  9. LORAZEPAM [Concomitant]
     Active Substance: LORAZEPAM
  10. AMPYRA [Concomitant]
     Active Substance: DALFAMPRIDINE
  11. OXYBUTYNIN [Concomitant]
     Active Substance: OXYBUTYNIN
  12. TRAZODONE HCL [Concomitant]
     Active Substance: TRAZODONE HYDROCHLORIDE
  13. BACLOFEN [Concomitant]
     Active Substance: BACLOFEN
  14. PREDNISONE [Concomitant]
     Active Substance: PREDNISONE
  15. PROLIA [Concomitant]
     Active Substance: DENOSUMAB
  16. MODAFINIL [Concomitant]
     Active Substance: MODAFINIL
  17. SOLU-MEDROL [Concomitant]
     Active Substance: METHYLPREDNISOLONE SODIUM SUCCINATE

REACTIONS (5)
  - Demyelination [Unknown]
  - Multiple sclerosis [Unknown]
  - Aphasia [Unknown]
  - Visual impairment [Unknown]
  - Oedema [Unknown]
